FAERS Safety Report 22250475 (Version 2)
Quarter: 2023Q2

REPORT INFORMATION
  Report Type: Spontaneous
  Country: US (occurrence: None)
  Receive Date: 20230425
  Receipt Date: 20230525
  Transmission Date: 20230722
  Serious: No
  Sender: FDA-Public Use
  Company Number: 2023A083901

PATIENT

DRUGS (1)
  1. PULMICORT FLEXHALER [Suspect]
     Active Substance: BUDESONIDE
     Dosage: 90MCG, 60 INHALATIONS
     Route: 055

REACTIONS (4)
  - Insomnia [Unknown]
  - Bronchitis [Unknown]
  - Device defective [Unknown]
  - Device malfunction [Unknown]
